FAERS Safety Report 9340196 (Version 1)
Quarter: 2013Q2

REPORT INFORMATION
  Report Type: Spontaneous
  Country: US (occurrence: None)
  Receive Date: 20130610
  Receipt Date: 20130610
  Transmission Date: 20140414
  Serious: No
  Sender: FDA-Public Use
  Company Number: None

PATIENT
  Age: 53 Year
  Sex: Male

DRUGS (1)
  1. AUBAGIO, 14MG, GENZYME [Suspect]
     Indication: MULTIPLE SCLEROSIS
     Dates: start: 20121202, end: 20130524

REACTIONS (3)
  - Back pain [None]
  - Alopecia [None]
  - Platelet count decreased [None]
